FAERS Safety Report 13327762 (Version 1)
Quarter: 2017Q1

REPORT INFORMATION
  Report Type: Spontaneous
  Country: US (occurrence: US)
  Receive Date: 20170313
  Receipt Date: 20170313
  Transmission Date: 20170428
  Serious: No
  Sender: FDA-Public Use
  Company Number: US-JNJFOC-20170200065

PATIENT
  Age: 29 Year
  Sex: Female
  Weight: 69.4 kg

DRUGS (2)
  1. WOMENS ROGAINE UNSCENTED [Suspect]
     Active Substance: MINOXIDIL
     Route: 061
  2. WOMENS ROGAINE UNSCENTED [Suspect]
     Active Substance: MINOXIDIL
     Indication: ALOPECIA
     Dosage: 1/2 CAPFUL, ABOUT 2 WEEKS PRIOR TO THE DATE OF REPORT
     Route: 061
     Dates: start: 2017

REACTIONS (1)
  - Alopecia [Not Recovered/Not Resolved]
